FAERS Safety Report 21570443 (Version 2)
Quarter: 2023Q1

REPORT INFORMATION
  Report Type: Report from Study
  Country: US (occurrence: US)
  Receive Date: 20221109
  Receipt Date: 20230104
  Transmission Date: 20230417
  Serious: No
  Sender: FDA-Public Use
  Company Number: US-ABBVIE-22K-163-4512633-00

PATIENT
  Sex: Female

DRUGS (3)
  1. RINVOQ [Suspect]
     Active Substance: UPADACITINIB
     Indication: Rheumatoid arthritis
     Dosage: DAILY, FORM STRENGTH 15 MILLIGRAM
     Route: 048
     Dates: start: 202207
  2. RINVOQ [Suspect]
     Active Substance: UPADACITINIB
     Indication: Rheumatoid arthritis
     Dosage: FORM STRENGTH 15 MILLIGRAM
     Route: 048
     Dates: start: 202207
  3. RINVOQ [Suspect]
     Active Substance: UPADACITINIB
     Indication: Rheumatoid arthritis

REACTIONS (13)
  - Loss of personal independence in daily activities [Unknown]
  - Pain [Unknown]
  - Mobility decreased [Unknown]
  - Back disorder [Unknown]
  - Carpal tunnel syndrome [Unknown]
  - Unevaluable event [Not Recovered/Not Resolved]
  - Peripheral swelling [Unknown]
  - Gait disturbance [Unknown]
  - Tenderness [Not Recovered/Not Resolved]
  - Balance disorder [Unknown]
  - Therapeutic product effect incomplete [Unknown]
  - Chills [Not Recovered/Not Resolved]
  - Joint range of motion decreased [Unknown]
